FAERS Safety Report 6558920-8 (Version None)
Quarter: 2010Q1

REPORT INFORMATION
  Report Type: 
  Country: None (occurrence: None)
  Receive Date: 20100129
  Receipt Date: 20100120
  Transmission Date: 20100710
  Serious: Yes (Other)
  Sender: FDA-Public Use
  Company Number: JP-PFIZER INC-2010002413

PATIENT
  Age: 65 Year
  Sex: Female
  Weight: 48.6 kg

DRUGS (13)
  1. ZITHROMAX [Suspect]
     Indication: PHARYNGITIS
     Dosage: 500 MG/DAY
     Route: 048
     Dates: start: 20091224, end: 20091226
  2. PELEX [Suspect]
     Indication: PHARYNGITIS
     Dosage: 1 G, 3X/DAY
     Route: 048
     Dates: start: 20091223, end: 20091225
  3. EPADEL [Concomitant]
     Dosage: UNK
     Route: 048
  4. VALSARTAN [Concomitant]
     Dosage: UNK
     Route: 048
  5. AMLODIPINE [Concomitant]
     Dosage: UNK
     Route: 048
  6. FERROMIA [Concomitant]
     Dosage: UNK
     Route: 048
  7. GLUCONSAN K [Concomitant]
     Dosage: UNK
     Route: 048
  8. ATELEC [Concomitant]
     Dosage: UNK
     Route: 048
  9. ENALAPRIL MALEATE [Concomitant]
     Dosage: UNK
     Route: 048
  10. CARDENALIN [Concomitant]
     Dosage: UNK
     Route: 048
  11. INSULIN HUMAN [Concomitant]
     Dosage: UNK
     Route: 042
  12. INSULIN HUMAN [Concomitant]
     Dosage: UNK
     Route: 042
  13. SENNA [Concomitant]
     Dosage: UNK
     Route: 048
     Dates: start: 20091125, end: 20091223

REACTIONS (1)
  - BLOOD GLUCOSE DECREASED [None]
